FAERS Safety Report 15361845 (Version 1)
Quarter: 2018Q3

REPORT INFORMATION
  Report Type: Spontaneous
  Country: FR (occurrence: FR)
  Receive Date: 20180907
  Receipt Date: 20180907
  Transmission Date: 20181010
  Serious: Yes (Hospitalization)
  Sender: FDA-Public Use
  Company Number: FR-EMD SERONO-E2B_90057473

PATIENT
  Age: 29 Year
  Sex: Female

DRUGS (3)
  1. GONAL?F [Suspect]
     Active Substance: FOLLITROPIN
     Indication: CONTROLLED OVARIAN STIMULATION
     Route: 058
     Dates: start: 20170501, end: 20170512
  2. OVITRELLE [Suspect]
     Active Substance: CHORIOGONADOTROPIN ALFA
     Indication: OVULATION INDUCTION
     Route: 058
     Dates: start: 20170513, end: 20170513
  3. ORGALUTRAN [Suspect]
     Active Substance: GANIRELIX ACETATE
     Indication: CONTROLLED OVARIAN STIMULATION
     Dosage: 0.25 MG/0.5 ML
     Route: 058
     Dates: start: 20170507, end: 20170512

REACTIONS (2)
  - Ovarian hyperstimulation syndrome [Recovered/Resolved]
  - Pelvic fluid collection [Recovered/Resolved]

NARRATIVE: CASE EVENT DATE: 20170518
